FAERS Safety Report 7155004-5 (Version None)
Quarter: 2010Q4

REPORT INFORMATION
  Report Type: 
  Country: None (occurrence: None)
  Receive Date: 20101214
  Receipt Date: 20091118
  Transmission Date: 20110411
  Serious: Yes (Hospitalization, Other)
  Sender: FDA-Public Use
  Company Number: US-AMGEN-QUU375528

PATIENT

DRUGS (1)
  1. ENBREL [Suspect]
     Indication: PSORIATIC ARTHROPATHY
     Dosage: 25 MG, 2 TIMES/WK
     Route: 058

REACTIONS (7)
  - CANDIDIASIS [None]
  - INTERSTITIAL LUNG DISEASE [None]
  - MUSCLE SPASMS [None]
  - PNEUMONIA STAPHYLOCOCCAL [None]
  - RENAL OSTEODYSTROPHY [None]
  - RESTLESS LEGS SYNDROME [None]
  - TOOTH FRACTURE [None]
